FAERS Safety Report 23642032 (Version 1)
Quarter: 2024Q1

REPORT INFORMATION
  Report Type: Report from Study
  Country: IE (occurrence: IE)
  Receive Date: 20240318
  Receipt Date: 20240318
  Transmission Date: 20240410
  Serious: Yes (Hospitalization)
  Sender: FDA-Public Use
  Company Number: IE-JNJFOC-20240335298

PATIENT
  Age: 58 Year
  Sex: Male

DRUGS (8)
  1. ZYTIGA [Suspect]
     Active Substance: ABIRATERONE ACETATE
     Indication: Prostate cancer
     Route: 048
     Dates: start: 20210308
  2. PREDNISOLONE [Concomitant]
     Active Substance: PREDNISOLONE
     Route: 050
  3. XGEVA [Concomitant]
     Active Substance: DENOSUMAB
     Route: 050
  4. GONADORELIN [Concomitant]
     Active Substance: GONADORELIN
     Route: 050
  5. TELMISARTAN [Concomitant]
     Active Substance: TELMISARTAN
     Route: 050
  6. EXPUTEX [Concomitant]
     Route: 050
  7. UNSPECIFIED INGREDIENT [Concomitant]
     Active Substance: UNSPECIFIED INGREDIENT
     Route: 050
  8. UNSPECIFIED INGREDIENT [Concomitant]
     Active Substance: UNSPECIFIED INGREDIENT
     Route: 050

REACTIONS (1)
  - Bronchiolitis [Recovering/Resolving]

NARRATIVE: CASE EVENT DATE: 20240301
